FAERS Safety Report 9097485 (Version 1)
Quarter: 2013Q1

REPORT INFORMATION
  Report Type: Spontaneous
  Country: US (occurrence: US)
  Receive Date: 20130212
  Receipt Date: 20130212
  Transmission Date: 20140127
  Serious: Yes (Death)
  Sender: FDA-Public Use
  Company Number: US-JNJFOC-20130204831

PATIENT
  Age: 89 Year
  Sex: Female
  Weight: 50.35 kg

DRUGS (4)
  1. EXTRA STRENGTH TYLENOL RAPID RELEASE [Suspect]
     Indication: BACK PAIN
     Route: 048
  2. EXTRA STRENGTH TYLENOL RAPID RELEASE [Suspect]
     Indication: HEADACHE
     Route: 048
  3. LEXAPRO [Concomitant]
     Indication: DEPRESSION
     Route: 065
  4. HEART MEDICATION (NOS) [Concomitant]
     Route: 065

REACTIONS (2)
  - Cerebrovascular accident [Fatal]
  - Drug ineffective [Unknown]
